FAERS Safety Report 15271508 (Version 1)
Quarter: 2018Q3

REPORT INFORMATION
  Report Type: Spontaneous
  Country: FR (occurrence: FR)
  Receive Date: 20180813
  Receipt Date: 20180813
  Transmission Date: 20181010
  Serious: Yes (Death, Other)
  Sender: FDA-Public Use
  Company Number: FR-PFIZER INC-2018320520

PATIENT
  Age: 69 Year
  Sex: Male

DRUGS (1)
  1. ADRIBLASTINE [Suspect]
     Active Substance: DOXORUBICIN
     Indication: THERAPEUTIC EMBOLISATION
     Dosage: UNK
     Route: 025
     Dates: start: 20131203, end: 20140124

REACTIONS (1)
  - Cholecystitis infective [Fatal]

NARRATIVE: CASE EVENT DATE: 20131204
